FAERS Safety Report 22173240 (Version 4)
Quarter: 2023Q2

REPORT INFORMATION
  Report Type: Spontaneous
  Country: US (occurrence: US)
  Receive Date: 20230404
  Receipt Date: 20230623
  Transmission Date: 20230721
  Serious: Yes (Other)
  Sender: FDA-Public Use
  Company Number: US-BRISTOL-MYERS SQUIBB COMPANY-2023-045231

PATIENT
  Age: 84 Year
  Sex: Male

DRUGS (3)
  1. REVLIMID [Suspect]
     Active Substance: LENALIDOMIDE
     Indication: Plasma cell myeloma
     Dosage: TAKE 1 CAPSULE BY MOUTH EVERY DAY FOR 21
     Route: 048
     Dates: start: 20220721
  2. REVLIMID [Suspect]
     Active Substance: LENALIDOMIDE
     Route: 048
     Dates: start: 20230518
  3. REVLIMID [Suspect]
     Active Substance: LENALIDOMIDE
     Dosage: TAKE 1 CAPSULE BY MOUTH EVERY DAY FOR 21 DAYS THEN 7 DAYS OF REST
     Route: 048
     Dates: start: 20230523

REACTIONS (8)
  - Peripheral swelling [Recovered/Resolved]
  - Pain in extremity [Recovering/Resolving]
  - Hallucination [Recovering/Resolving]
  - Tooth fracture [Recovered/Resolved]
  - Localised infection [Recovered/Resolved]
  - Muscle spasms [Unknown]
  - Palpitations [Not Recovered/Not Resolved]
  - Fungal skin infection [Not Recovered/Not Resolved]
